FAERS Safety Report 4622342-7 (Version None)
Quarter: 2005Q1

REPORT INFORMATION
  Report Type: 
  Country: None (occurrence: None)
  Receive Date: 20050325
  Receipt Date: 20050325
  Transmission Date: 20050727
  Serious: No
  Sender: FDA-Public Use
  Company Number: None

PATIENT

DRUGS (1)
  1. LIDOCAINE [Suspect]
     Dosage: ONE TIME SUBCUTANEOUS
     Route: 058
     Dates: start: 20050319, end: 20050319

REACTIONS (1)
  - ANAESTHETIC COMPLICATION [None]
